FAERS Safety Report 7354501-7 (Version None)
Quarter: 2011Q1

REPORT INFORMATION
  Report Type: 
  Country: None (occurrence: None)
  Receive Date: 20110316
  Receipt Date: 20101213
  Transmission Date: 20110831
  Serious: Yes (Other)
  Sender: FDA-Public Use
  Company Number: US-BAYER-2011-022358

PATIENT
  Sex: Female
  Weight: 72.109 kg

DRUGS (11)
  1. LEXAPRO [Concomitant]
     Dosage: 10 MG, UNK
     Dates: start: 20060407
  2. TYLENOL ES [Concomitant]
  3. MAGNESIUM [Concomitant]
     Indication: DIZZINESS
  4. LIPITOR [Concomitant]
  5. CALCIUM [Concomitant]
     Indication: DIZZINESS
  6. ZOCOR [Concomitant]
     Indication: BLOOD CHOLESTEROL INCREASED
     Dosage: 20 MG, QD
     Dates: start: 20050101, end: 20080101
  7. ASPIRIN [Concomitant]
     Dosage: UNK UNK, PRN
  8. YASMIN [Suspect]
     Indication: CONTRACEPTION
     Dosage: 1 DF, QD
     Dates: start: 20030101, end: 20070101
  9. PROTONIX [Concomitant]
     Dosage: 40 MG, UNK
  10. MOTRIN [Concomitant]
  11. TIZANIDINE [Concomitant]
     Dosage: 2 MG, UNK
     Dates: start: 20060205

REACTIONS (5)
  - CHOLECYSTITIS [None]
  - PAIN [None]
  - VOMITING [None]
  - FAT INTOLERANCE [None]
  - MENTAL DISORDER [None]
